FAERS Safety Report 11832952 (Version 2)
Quarter: 2015Q4

REPORT INFORMATION
  Report Type: Spontaneous
  Country: FR (occurrence: FR)
  Receive Date: 20151214
  Receipt Date: 20151215
  Transmission Date: 20160305
  Serious: Yes (Other)
  Sender: FDA-Public Use
  Company Number: FR-JNJFOC-20151202587

PATIENT

DRUGS (1)
  1. METHYLPHENIDATE HYDROCHLORIDE. [Suspect]
     Active Substance: METHYLPHENIDATE HYDROCHLORIDE
     Indication: ATTENTION DEFICIT/HYPERACTIVITY DISORDER
     Route: 042

REACTIONS (14)
  - Drug abuse [Unknown]
  - Weight decreased [Unknown]
  - Anxiety [Unknown]
  - Depression [Unknown]
  - Incorrect route of drug administration [Unknown]
  - Stress [Unknown]
  - Cardiac disorder [Unknown]
  - Fatigue [Unknown]
  - Hallucination [Unknown]
  - Paranoia [Unknown]
  - Drug diversion [Unknown]
  - Insomnia [Unknown]
  - Abscess [Unknown]
  - Aggression [Unknown]
